FAERS Safety Report 4663164-0 (Version None)
Quarter: 2005Q2

REPORT INFORMATION
  Report Type: 
  Country: None (occurrence: None)
  Receive Date: 20050513
  Receipt Date: 20050429
  Transmission Date: 20051028
  Serious: No
  Sender: FDA-Public Use
  Company Number: ABVAF-05-0208

PATIENT
  Age: 48 Year
  Sex: Female
  Weight: 182 kg

DRUGS (7)
  1. ABRAXANE [Suspect]
     Indication: BREAST CANCER METASTATIC
     Dosage: 500 MG (260 MG/M2, EVERY 3 WEEKS), INTRAVENOUS DRIP
     Route: 041
     Dates: start: 20050328
  2. ATIVAN [Concomitant]
  3. PAXIL [Concomitant]
  4. NEURONTIN [Concomitant]
  5. CELEBREX [Concomitant]
  6. TRAZODONE HCL [Concomitant]
  7. PERCOCET [Concomitant]

REACTIONS (1)
  - PAIN [None]
